FAERS Safety Report 8392148-4 (Version None)
Quarter: 2012Q2

REPORT INFORMATION
  Report Type: 
  Country: None (occurrence: None)
  Receive Date: 20120529
  Receipt Date: 20120521
  Transmission Date: 20120825
  Serious: Yes (Other)
  Sender: FDA-Public Use
  Company Number: US-ROCHE-1070825

PATIENT
  Sex: Male

DRUGS (2)
  1. ACCUTANE [Suspect]
     Indication: ACNE
     Dates: start: 20040101, end: 20050101
  2. ACCUTANE [Suspect]
     Dates: start: 20060101, end: 20070101

REACTIONS (3)
  - CROHN'S DISEASE [None]
  - MOUTH ULCERATION [None]
  - APHTHOUS STOMATITIS [None]
